FAERS Safety Report 8325724-5 (Version None)
Quarter: 2012Q2

REPORT INFORMATION
  Report Type: 
  Country: None (occurrence: None)
  Receive Date: 20120501
  Receipt Date: 20120423
  Transmission Date: 20120825
  Serious: Yes (Hospitalization)
  Sender: FDA-Public Use
  Company Number: US-BIOGENIDEC-2011BI020617

PATIENT
  Sex: Female
  Weight: 70 kg

DRUGS (22)
  1. TYLENOL (CAPLET) [Concomitant]
  2. METOPROLOL TARTRATE [Concomitant]
  3. NAMENDA [Concomitant]
     Route: 048
  4. AVONEX [Suspect]
     Indication: MULTIPLE SCLEROSIS
     Route: 030
     Dates: start: 20011026, end: 20091002
  5. ASPIRIN [Concomitant]
  6. COREG [Concomitant]
  7. PROVIGIL [Concomitant]
     Route: 048
  8. DARVOCET [Concomitant]
  9. WELLBUTRIN [Concomitant]
     Indication: DEPRESSION
     Route: 048
  10. LUNESTA [Concomitant]
     Route: 048
  11. AVAPRO [Concomitant]
  12. AVONEX [Suspect]
     Route: 030
     Dates: start: 20091124, end: 20120113
  13. LYRICA [Concomitant]
     Route: 048
  14. ADVAIR DISKUS 250/50 [Concomitant]
  15. CLONIDINE [Concomitant]
  16. XALATAN [Concomitant]
     Route: 047
  17. AMBIEN [Concomitant]
     Route: 048
  18. ARICEPT [Concomitant]
  19. FOSAMAX [Concomitant]
  20. NUVIGIL [Concomitant]
  21. CYMBALTA [Concomitant]
     Route: 048
  22. PRILOSEC [Concomitant]
     Route: 048

REACTIONS (11)
  - LEFT VENTRICULAR HYPERTROPHY [None]
  - RESPIRATORY ARREST [None]
  - INTRACARDIAC THROMBUS [None]
  - PNEUMONIA [None]
  - HYPERTENSION [None]
  - CARDIAC FAILURE CONGESTIVE [None]
  - PULMONARY HYPERTENSION [None]
  - ATRIAL FIBRILLATION [None]
  - UPPER RESPIRATORY TRACT INFECTION [None]
  - DIASTOLIC DYSFUNCTION [None]
  - APHASIA [None]
